FAERS Safety Report 10097242 (Version 2)
Quarter: 2014Q2

REPORT INFORMATION
  Report Type: Spontaneous
  Country: JP (occurrence: JP)
  Receive Date: 20140422
  Receipt Date: 20140430
  Transmission Date: 20141212
  Serious: Yes (Other)
  Sender: FDA-Public Use
  Company Number: PHHY2014JP048604

PATIENT
  Age: 58 Year
  Sex: Female

DRUGS (7)
  1. FEMARA [Suspect]
     Indication: BREAST CANCER
     Dosage: 2.5 MG, DAILY
     Route: 048
  2. PURSENIDE [Concomitant]
     Dosage: UNK UKN, UNK
     Route: 048
  3. LUDIOMIL//MAPROTILINE HYDROCHLORIDE [Concomitant]
     Dosage: UNK UKN, UNK
     Route: 048
  4. LONASEN [Concomitant]
     Dosage: UNK UKN, UNK
     Route: 048
  5. MAGMITT [Concomitant]
     Dosage: UNK UKN, UNK
     Route: 048
  6. DEPAS [Concomitant]
     Dosage: UNK UKN, UNK
     Route: 048
  7. LENDORMIN [Concomitant]
     Dosage: UNK UKN, UNK
     Route: 048

REACTIONS (2)
  - Rhabdomyolysis [Unknown]
  - Blood creatine phosphokinase increased [Unknown]
